FAERS Safety Report 7493290-2 (Version None)
Quarter: 2011Q2

REPORT INFORMATION
  Report Type: 
  Country: None (occurrence: None)
  Receive Date: 20110520
  Receipt Date: 20080729
  Transmission Date: 20111010
  Serious: Yes (Other)
  Sender: FDA-Public Use
  Company Number: US-BAYER-200829625NA

PATIENT
  Age: 56 Year
  Sex: Male
  Weight: 125.17 kg

DRUGS (11)
  1. TRASYLOL [Suspect]
     Indication: ENDARTERECTOMY
  2. PREVACID [Concomitant]
  3. VANCOMYCIN [Concomitant]
     Dosage: 1 GRAM
     Route: 042
     Dates: start: 20030718
  4. DOBUTAMINE HYDROCHLORIDE [Concomitant]
     Dosage: TITRATED
     Route: 042
     Dates: start: 20030718
  5. RED BLOOD CELLS [Concomitant]
     Dosage: UNK
     Dates: start: 20030718
  6. PROTONIX [Concomitant]
  7. NITROGLYCERIN [Concomitant]
     Dosage: TITRATED
     Route: 042
     Dates: start: 20030718
  8. HEPARIN [Concomitant]
     Route: 058
  9. TRASYLOL [Suspect]
     Indication: CORONARY ARTERY BYPASS
     Dosage: NO TEST DOSE. LOADING DOSE (200ML INFUSION OVER 3.25 HRS)
     Route: 042
     Dates: start: 20030718, end: 20030718
  10. AMIODARONE HCL [Concomitant]
     Dosage: 0.5MCG/MIN
  11. METOPROLOL TARTRATE [Concomitant]

REACTIONS (5)
  - ANXIETY [None]
  - EMOTIONAL DISTRESS [None]
  - RENAL FAILURE [None]
  - UNEVALUABLE EVENT [None]
  - INJURY [None]
